FAERS Safety Report 9167865 (Version 1)
Quarter: 2013Q1

REPORT INFORMATION
  Report Type: Spontaneous
  Country: AT (occurrence: None)
  Receive Date: 20130304
  Receipt Date: 20130304
  Transmission Date: 20140127
  Serious: Yes (Hospitalization)
  Sender: FDA-Public Use
  Company Number: 0219279

PATIENT
  Sex: Female

DRUGS (2)
  1. TACHOSIL [Suspect]
  2. OPIOIDS NOS [Concomitant]

REACTIONS (2)
  - Ileus [None]
  - Product adhesion issue [None]
